FAERS Safety Report 8954852 (Version 1)
Quarter: 2012Q4

REPORT INFORMATION
  Report Type: 
  Country: GB (occurrence: GB)
  Receive Date: 20121207
  Receipt Date: 20121207
  Transmission Date: 20130627
  Serious: Yes (Other)
  Sender: FDA-Public Use
  Company Number: GB-ASTRAZENECA-2012SE90406

PATIENT
  Age: 13514 Day
  Sex: Female
  Weight: 84 kg

DRUGS (1)
  1. ZOLADEX [Suspect]
     Route: 058
     Dates: start: 20121114, end: 20121114

REACTIONS (1)
  - Anaphylactic reaction [Not Recovered/Not Resolved]
